FAERS Safety Report 12212367 (Version 1)
Quarter: 2016Q1

REPORT INFORMATION
  Report Type: Report from Study
  Country: DE (occurrence: DE)
  Receive Date: 20160325
  Receipt Date: 20160325
  Transmission Date: 20160526
  Serious: Yes (Hospitalization)
  Sender: FDA-Public Use
  Company Number: DE-BIOGEN-2016BI00208268

PATIENT
  Age: 46 Year
  Sex: Female

DRUGS (4)
  1. JODID [Concomitant]
     Active Substance: IODINE
     Indication: THYROID MASS
     Route: 048
     Dates: start: 200001
  2. TECFIDERA [Suspect]
     Active Substance: DIMETHYL FUMARATE
     Indication: MULTIPLE SCLEROSIS
     Route: 048
     Dates: start: 20140301
  3. MAGNESIUM [Concomitant]
     Active Substance: MAGNESIUM
     Indication: PARAESTHESIA
     Route: 065
     Dates: start: 2013
  4. VITAMIN D [Concomitant]
     Active Substance: CHOLECALCIFEROL
     Indication: VITAMIN D DEFICIENCY
     Route: 065
     Dates: start: 2013

REACTIONS (2)
  - Lymphocyte count decreased [Not Recovered/Not Resolved]
  - Gait disturbance [Not Recovered/Not Resolved]

NARRATIVE: CASE EVENT DATE: 2016
